FAERS Safety Report 19227142 (Version 1)
Quarter: 2021Q2

REPORT INFORMATION
  Report Type: Spontaneous
  Country: IN (occurrence: IN)
  Receive Date: 20210507
  Receipt Date: 20210507
  Transmission Date: 20210717
  Serious: Yes (Hospitalization, Other)
  Sender: FDA-Public Use
  Company Number: IN-GRANULES-IN-2021GRALIT00278

PATIENT
  Age: 28 Year
  Sex: Female

DRUGS (4)
  1. RANITIDINE. [Suspect]
     Active Substance: RANITIDINE
     Indication: PRODUCT USED FOR UNKNOWN INDICATION
     Route: 042
  2. RINGERS LACTATE [Suspect]
     Active Substance: CALCIUM CHLORIDE\POTASSIUM CHLORIDE\SODIUM LACTATE
     Indication: PRODUCT USED FOR UNKNOWN INDICATION
     Route: 065
  3. PHENYTOIN. [Suspect]
     Active Substance: PHENYTOIN
     Indication: GENERALISED TONIC-CLONIC SEIZURE
     Route: 042
  4. MIDAZOLAM. [Interacting]
     Active Substance: MIDAZOLAM
     Indication: SEIZURE
     Route: 065

REACTIONS (8)
  - Seizure [Recovering/Resolving]
  - Ataxia [Recovering/Resolving]
  - Toxicity to various agents [Unknown]
  - Dysarthria [Recovering/Resolving]
  - Drug interaction [Unknown]
  - Nystagmus [Recovering/Resolving]
  - Muscle twitching [Recovering/Resolving]
  - Blepharospasm [Recovering/Resolving]
